FAERS Safety Report 8905308 (Version 1)
Quarter: 2012Q4

REPORT INFORMATION
  Report Type: 
  Country: US (occurrence: US)
  Receive Date: 20121113
  Receipt Date: 20121113
  Transmission Date: 20130627
  Serious: Yes (Other)
  Sender: FDA-Public Use
  Company Number: US-SANOFI-AVENTIS-2012SA081229

PATIENT
  Sex: Male

DRUGS (2)
  1. LANTUS [Suspect]
     Dosage: Dose:38 unit(s)
     Route: 058
     Dates: start: 2005
  2. LANTUS [Suspect]
     Dosage: Dose:38 unit(s)
     Route: 058
     Dates: start: 2005

REACTIONS (2)
  - Macular degeneration [Unknown]
  - Visual impairment [Unknown]
